FAERS Safety Report 10920760 (Version 1)
Quarter: 2015Q1

REPORT INFORMATION
  Report Type: Spontaneous
  Country: US (occurrence: None)
  Receive Date: 20150312
  Receipt Date: 20150312
  Transmission Date: 20150721
  Serious: No
  Sender: FDA-Public Use
  Company Number: None

PATIENT
  Age: 17 Year
  Sex: Female
  Weight: 54.43 kg

DRUGS (1)
  1. ZENATANE [Suspect]
     Active Substance: ISOTRETINOIN
     Indication: ACNE CYSTIC
     Route: 048

REACTIONS (3)
  - Drug effect decreased [None]
  - Product substitution issue [None]
  - Product measured potency issue [None]

NARRATIVE: CASE EVENT DATE: 20150311
